FAERS Safety Report 14635060 (Version 1)
Quarter: 2018Q1

REPORT INFORMATION
  Report Type: Spontaneous
  Country: US (occurrence: US)
  Receive Date: 20180313
  Receipt Date: 20180313
  Transmission Date: 20180509
  Serious: Yes (Hospitalization)
  Sender: FDA-Public Use
  Company Number: None

PATIENT
  Sex: Male

DRUGS (23)
  1. LEVOFLOXACIN. [Concomitant]
     Active Substance: LEVOFLOXACIN
  2. DEXTROAMPHET SACCHARAT, AMPHET ASPARTATE, DEXTROAMPHET SULFATE AND AMPHET SULFAT [Concomitant]
     Active Substance: AMPHETAMINE ASPARTATE\AMPHETAMINE SULFATE\DEXTROAMPHETAMINE SACCHARATE\DEXTROAMPHETAMINE SULFATE
  3. VITAMIN D [Concomitant]
     Active Substance: CHOLECALCIFEROL
  4. CEFDINIR. [Concomitant]
     Active Substance: CEFDINIR
  5. AZITHROMYCIN ANHYDROUS. [Concomitant]
     Active Substance: AZITHROMYCIN ANHYDROUS
  6. METHYLPRED [Concomitant]
     Active Substance: METHYLPREDNISOLONE
  7. IPRATROPIUM [Concomitant]
     Active Substance: IPRATROPIUM
  8. POT CL MICRO [Concomitant]
  9. HYDROXYZ HCL [Concomitant]
     Active Substance: HYDROXYZINE HYDROCHLORIDE
  10. DEXTROAMPHET SACCHARAT, AMPHET ASPARTATE, DEXTROAMPHET SULFATE AND AMPHET SULFAT [Concomitant]
     Active Substance: AMPHETAMINE ASPARTATE\AMPHETAMINE SULFATE\DEXTROAMPHETAMINE SACCHARATE\DEXTROAMPHETAMINE SULFATE
  11. AZATHIOPRINE. [Concomitant]
     Active Substance: AZATHIOPRINE
  12. GABAPENTIN. [Concomitant]
     Active Substance: GABAPENTIN
  13. ZALEPLON. [Concomitant]
     Active Substance: ZALEPLON
  14. ALBUTEROL. [Concomitant]
     Active Substance: ALBUTEROL
  15. PREDNISOLONE. [Concomitant]
     Active Substance: PREDNISOLONE
  16. STELARA [Suspect]
     Active Substance: USTEKINUMAB
     Indication: OSTEOPOROSIS
     Dosage: 90 MG Q8WKS SC
     Route: 058
     Dates: start: 20180118
  17. VITAMIN D [Concomitant]
     Active Substance: CHOLECALCIFEROL
  18. CIPROFLOXACIN. [Concomitant]
     Active Substance: CIPROFLOXACIN
  19. CEFUROXIME. [Concomitant]
     Active Substance: CEFUROXIME
  20. ESOMEPRA MAG [Concomitant]
  21. DOXYCYCL HYC [Concomitant]
  22. BENZONATATE. [Concomitant]
     Active Substance: BENZONATATE
  23. DICYCLOMINE [Concomitant]
     Active Substance: DICYCLOMINE HYDROCHLORIDE

REACTIONS (1)
  - Pneumonia [None]
